FAERS Safety Report 7491023-7 (Version None)
Quarter: 2011Q2

REPORT INFORMATION
  Report Type: 
  Country: None (occurrence: None)
  Receive Date: 20110519
  Receipt Date: 20110512
  Transmission Date: 20111010
  Serious: Yes (Other)
  Sender: FDA-Public Use
  Company Number: US-PFIZER INC-2011103178

PATIENT

DRUGS (2)
  1. LITHIUM CARBONATE [Suspect]
     Dosage: UNK
  2. GEODON [Suspect]
     Dosage: 80 MG, 2X/DAY

REACTIONS (2)
  - DRUG INEFFECTIVE [None]
  - MANIA [None]
